FAERS Safety Report 22124040 (Version 1)
Quarter: 2023Q1

REPORT INFORMATION
  Report Type: Spontaneous
  Country: US (occurrence: None)
  Receive Date: 20230321
  Receipt Date: 20230321
  Transmission Date: 20230418
  Serious: No
  Sender: FDA-Public Use
  Company Number: None

PATIENT
  Age: 59 Year
  Sex: Male
  Weight: 68.85 kg

DRUGS (1)
  1. SUMATRIPTAN [Suspect]
     Active Substance: SUMATRIPTAN
     Indication: Migraine
     Dosage: OTHER QUANTITY : 1 TABLET(S);?FREQUENCY : TWICE A DAY;?
     Route: 048
     Dates: start: 20190301

REACTIONS (4)
  - Back pain [None]
  - Nausea [None]
  - Vomiting [None]
  - Drug ineffective [None]

NARRATIVE: CASE EVENT DATE: 20230319
